FAERS Safety Report 17308517 (Version 1)
Quarter: 2020Q1

REPORT INFORMATION
  Report Type: Spontaneous
  Country: US (occurrence: US)
  Receive Date: 20200123
  Receipt Date: 20200123
  Transmission Date: 20200409
  Serious: Yes (Other)
  Sender: FDA-Public Use
  Company Number: US-TEVA-2020-US-1170515

PATIENT
  Age: 62 Year
  Sex: Female

DRUGS (1)
  1. EPINEPHRINE. [Suspect]
     Active Substance: EPINEPHRINE
     Dosage: 0.3 MG / 0.3 ML
     Route: 065
     Dates: start: 20200106

REACTIONS (4)
  - Needle issue [Unknown]
  - Throat tightness [Unknown]
  - Drug ineffective [Unknown]
  - Diplopia [Unknown]

NARRATIVE: CASE EVENT DATE: 202001
